FAERS Safety Report 6606634-8 (Version None)
Quarter: 2010Q1

REPORT INFORMATION
  Report Type: 
  Country: None (occurrence: None)
  Receive Date: 20100226
  Receipt Date: 20100216
  Transmission Date: 20100710
  Serious: Yes (Death, Life-Threatening)
  Sender: FDA-Public Use
  Company Number: JP-ABBOTT-10P-087-0619576-00

PATIENT
  Sex: Female
  Weight: 50 kg

DRUGS (32)
  1. SEVOFRANE [Suspect]
     Indication: GENERAL ANAESTHESIA
     Dosage: 1-3% TOTAL ADMINISTRATION 70 ML
     Route: 055
     Dates: start: 20091224, end: 20091224
  2. FENTANYL CITRATE [Concomitant]
     Indication: GENERAL ANAESTHESIA
     Route: 042
     Dates: start: 20091224, end: 20091224
  3. CEFAZOLIN SODIUM [Concomitant]
     Indication: INFECTION PROPHYLAXIS
     Route: 042
     Dates: start: 20091224, end: 20091224
  4. L-ASPARTATE POTASSIUM [Concomitant]
     Indication: DRUG USE FOR UNKNOWN INDICATION
     Route: 050
  5. ADONA [Concomitant]
     Indication: DRUG USE FOR UNKNOWN INDICATION
     Route: 050
  6. ANCOMA (MONOSODIUM L-GLUTAMATE MONOHYDRATE) [Concomitant]
     Indication: DRUG USE FOR UNKNOWN INDICATION
  7. INOVAN [Concomitant]
     Indication: DRUG USE FOR UNKNOWN INDICATION
  8. CALCICOL [Concomitant]
     Indication: DRUG USE FOR UNKNOWN INDICATION
  9. LIDOCAINE [Concomitant]
     Indication: DRUG USE FOR UNKNOWN INDICATION
  10. KAYTWO N [Concomitant]
     Indication: DRUG USE FOR UNKNOWN INDICATION
  11. SALINHES [Concomitant]
     Indication: DRUG USE FOR UNKNOWN INDICATION
  12. ISOTONIC SODIUM CHOLORIDE SOLUTION [Concomitant]
     Indication: DRUG USE FOR UNKNOWN INDICATION
  13. DOBUTREX [Concomitant]
     Indication: DRUG USE FOR UNKNOWN INDICATION
  14. DORMICUM [Concomitant]
     Indication: DRUG USE FOR UNKNOWN INDICATION
  15. NEOSYNESIN [Concomitant]
     Indication: DRUG USE FOR UNKNOWN INDICATION
  16. NOR ADRENALIN [Concomitant]
     Indication: DRUG USE FOR UNKNOWN INDICATION
  17. LACTATED RINGER'S SOLUTION (HARTMANN'S) [Concomitant]
     Indication: DRUG USE FOR UNKNOWN INDICATION
  18. HUMULIN R [Concomitant]
     Indication: DRUG USE FOR UNKNOWN INDICATION
  19. NOVO HEPARIN [Concomitant]
     Indication: DRUG USE FOR UNKNOWN INDICATION
  20. NICARDIPINE HYDROCHLORIDE [Concomitant]
     Indication: DRUG USE FOR UNKNOWN INDICATION
  21. MAGNESOL [Concomitant]
     Indication: DRUG USE FOR UNKNOWN INDICATION
  22. MANNITOL-S [Concomitant]
     Indication: DRUG USE FOR UNKNOWN INDICATION
  23. MIRACLID [Concomitant]
     Indication: DRUG USE FOR UNKNOWN INDICATION
  24. NITROGLYCERIN [Concomitant]
     Indication: DRUG USE FOR UNKNOWN INDICATION
  25. MEYLON [Concomitant]
     Indication: DRUG USE FOR UNKNOWN INDICATION
  26. LASIX [Concomitant]
     Indication: DRUG USE FOR UNKNOWN INDICATION
  27. NOVO PROTAMIN SULFATE [Concomitant]
     Indication: DRUG USE FOR UNKNOWN INDICATION
  28. LIDOCAINE [Concomitant]
  29. SURGICEL ABSORBABLE HEMOSTATIC CONE [Concomitant]
     Indication: DRUG USE FOR UNKNOWN INDICATION
  30. BOLHEAL [Concomitant]
     Indication: DRUG USE FOR UNKNOWN INDICATION
  31. MIOBLOCK [Concomitant]
     Indication: DRUG USE FOR UNKNOWN INDICATION
  32. FRESH FROZEN PLASMA [Concomitant]
     Indication: HAEMORRHAGIC DIATHESIS
     Dates: start: 20091224, end: 20091224

REACTIONS (9)
  - BLOOD PRESSURE DECREASED [None]
  - HYPERCAPNIA [None]
  - HYPERTHERMIA [None]
  - HYPERTHERMIA MALIGNANT [None]
  - HYPOXIA [None]
  - MULTI-ORGAN FAILURE [None]
  - RENAL FAILURE ACUTE [None]
  - TACHYCARDIA [None]
  - TACHYPNOEA [None]
